FAERS Safety Report 9405916 (Version 1)
Quarter: 2013Q3

REPORT INFORMATION
  Report Type: Report from Study
  Country: US (occurrence: US)
  Receive Date: 20130717
  Receipt Date: 20130717
  Transmission Date: 20140515
  Serious: Yes (Hospitalization)
  Sender: FDA-Public Use
  Company Number: US-GLAXOSMITHKLINE-A1033629A

PATIENT
  Age: 66 Year
  Sex: Male
  Weight: 76 kg

DRUGS (2)
  1. PAZOPANIB [Suspect]
     Indication: TRANSITIONAL CELL CARCINOMA
     Dosage: 800MG PER DAY
     Route: 048
     Dates: start: 20130617
  2. PACLITAXEL [Suspect]
     Indication: TRANSITIONAL CELL CARCINOMA
     Dosage: 80MGM2 CYCLIC
     Route: 042
     Dates: start: 20130617

REACTIONS (1)
  - Febrile neutropenia [Unknown]
